FAERS Safety Report 8785796 (Version 2)
Quarter: 2012Q4

REPORT INFORMATION
  Report Type: 
  Country: FR (occurrence: FR)
  Receive Date: 20120914
  Receipt Date: 20120924
  Transmission Date: 20130627
  Serious: Yes (Hospitalization)
  Sender: FDA-Public Use
  Company Number: FR-GLAXOSMITHKLINE-B0828225A

PATIENT
  Age: 79 Year
  Sex: Female

DRUGS (4)
  1. DEROXAT [Suspect]
     Indication: PRODUCT USED FOR UNKNOWN INDICATION
     Route: 048
     Dates: start: 20110822, end: 20110828
  2. PRETERAX [Suspect]
     Indication: PRODUCT USED FOR UNKNOWN INDICATION
     Route: 048
     Dates: end: 20110828
  3. TENORMINE [Suspect]
     Indication: PRODUCT USED FOR UNKNOWN INDICATION
     Dosage: 25MG Per day
     Route: 048
  4. OMEPRAZOLE [Suspect]
     Indication: PRODUCT USED FOR UNKNOWN INDICATION
     Route: 048

REACTIONS (5)
  - Hyponatraemia [Recovered/Resolved]
  - Abnormal behaviour [Recovered/Resolved]
  - General physical health deterioration [Unknown]
  - Decreased appetite [Unknown]
  - Agitation [Unknown]
